FAERS Safety Report 21522006 (Version 1)
Quarter: 2022Q4

REPORT INFORMATION
  Report Type: Report from Study
  Country: US (occurrence: US)
  Receive Date: 20221028
  Receipt Date: 20221028
  Transmission Date: 20230113
  Serious: No
  Sender: FDA-Public Use
  Company Number: US-ABBVIE-22K-163-4372302-00

PATIENT
  Sex: Male

DRUGS (1)
  1. IMBRUVICA [Suspect]
     Active Substance: IBRUTINIB
     Indication: Squamous cell carcinoma of skin
     Dosage: FORM STRENGTH: 140 MG
     Route: 048

REACTIONS (4)
  - Rash [Recovering/Resolving]
  - Cystitis [Recovering/Resolving]
  - Drug ineffective [Unknown]
  - Contusion [Recovering/Resolving]
